FAERS Safety Report 8796745 (Version 2)
Quarter: 2015Q2

REPORT INFORMATION
  Report Type: Report from Study
  Country: US (occurrence: US)
  Receive Date: 20120917
  Receipt Date: 20150411
  Transmission Date: 20150821
  Serious: Yes (Death)
  Sender: FDA-Public Use
  Company Number: US-ROCHE-1127843

PATIENT
  Sex: Female

DRUGS (9)
  1. TAXOL [Concomitant]
     Active Substance: PACLITAXEL
     Route: 065
  2. TAXOTERE [Concomitant]
     Active Substance: DOCETAXEL
  3. CARBOPLATIN. [Concomitant]
     Active Substance: CARBOPLATIN
     Route: 065
  4. L-GLUTAMINE [Concomitant]
  5. HERCEPTIN [Suspect]
     Active Substance: TRASTUZUMAB
     Indication: BREAST CANCER METASTATIC
     Route: 065
  6. ZOFRAN [Concomitant]
     Active Substance: ONDANSETRON HYDROCHLORIDE
  7. NEUPOGEN [Concomitant]
     Active Substance: FILGRASTIM
     Route: 065
  8. COENZYME Q-10 [Concomitant]
  9. AVASTIN [Suspect]
     Active Substance: BEVACIZUMAB
     Indication: BREAST CANCER FEMALE
     Dosage: 15 MG/KG
     Route: 065

REACTIONS (12)
  - Death [Fatal]
  - Drug intolerance [Recovered/Resolved]
  - Rash [Unknown]
  - Chills [Unknown]
  - Skin disorder [Unknown]
  - Nausea [Unknown]
  - Back pain [Unknown]
  - Mucosal inflammation [Unknown]
  - Heart rate irregular [Unknown]
  - Metastasis [Unknown]
  - Palpitations [Unknown]
  - Neuralgia [Unknown]
